FAERS Safety Report 15612848 (Version 1)
Quarter: 2018Q4

REPORT INFORMATION
  Report Type: Spontaneous
  Country: US (occurrence: US)
  Receive Date: 20181113
  Receipt Date: 20181113
  Transmission Date: 20190205
  Serious: Yes (Hospitalization)
  Sender: FDA-Public Use
  Company Number: US-BRACCO-2018US03594

PATIENT
  Sex: Male

DRUGS (1)
  1. LUMASON [Suspect]
     Active Substance: SULFUR HEXAFLUORIDE
     Indication: ECHOCARDIOGRAM
     Dosage: 1 ML, SINGLE
     Dates: start: 20180702, end: 20180702

REACTIONS (10)
  - Feeling jittery [Unknown]
  - Nausea [Unknown]
  - Malaise [Unknown]
  - Swollen tongue [Unknown]
  - Dyspnoea [Unknown]
  - Feeling hot [Unknown]
  - Unresponsive to stimuli [Recovering/Resolving]
  - Heart rate decreased [Unknown]
  - Angioedema [Unknown]
  - Upper airway obstruction [Unknown]

NARRATIVE: CASE EVENT DATE: 20180702
